FAERS Safety Report 18029641 (Version 1)
Quarter: 2020Q3

REPORT INFORMATION
  Report Type: Spontaneous
  Country: US (occurrence: US)
  Receive Date: 20200715
  Receipt Date: 20200715
  Transmission Date: 20201103
  Serious: Yes (Other)
  Sender: FDA-Public Use
  Company Number: None

PATIENT
  Age: 25 Year
  Sex: Male
  Weight: 135 kg

DRUGS (6)
  1. CEFTRIAXONE IV [Concomitant]
     Dates: start: 20200707, end: 20200714
  2. REMDESIVIR. [Suspect]
     Active Substance: REMDESIVIR
     Indication: COVID-19
     Route: 042
  3. AZITHROMYCIN IV [Concomitant]
     Dates: start: 20200709, end: 20200714
  4. DEXAMETHASONE IV [Concomitant]
     Active Substance: DEXAMETHASONE
     Dates: start: 20200711
  5. VANCOMYCIN IV [Concomitant]
     Active Substance: VANCOMYCIN HYDROCHLORIDE
     Dates: start: 20200711
  6. ENOXAPARIN [Concomitant]
     Active Substance: ENOXAPARIN
     Dates: start: 20200708

REACTIONS (4)
  - Aspartate aminotransferase increased [None]
  - Blood alkaline phosphatase increased [None]
  - Liver function test increased [None]
  - Alanine aminotransferase increased [None]

NARRATIVE: CASE EVENT DATE: 20200715
